FAERS Safety Report 10169162 (Version 1)
Quarter: 2014Q2

REPORT INFORMATION
  Report Type: Spontaneous
  Country: US (occurrence: None)
  Receive Date: 20140512
  Receipt Date: 20140512
  Transmission Date: 20141212
  Serious: Yes (Hospitalization)
  Sender: FDA-Public Use
  Company Number: None

PATIENT
  Age: 54 Year
  Sex: Female

DRUGS (11)
  1. TASIGNA [Suspect]
     Indication: PRODUCT USED FOR UNKNOWN INDICATION
     Route: 048
     Dates: start: 20130504
  2. ASMANEX TWISTHALER [Concomitant]
  3. OXYCONTIN [Concomitant]
  4. HYDROCHLRORTHIAZIDE [Concomitant]
  5. VENLAFAXINE HCL [Concomitant]
  6. NAPROXEN [Concomitant]
  7. LANTOPROST [Concomitant]
  8. AMMONIUM LACTATE [Concomitant]
  9. ECONAZOLE NITRATE [Concomitant]
  10. FEXORAL [Concomitant]
  11. FENTINAL PATCH [Concomitant]

REACTIONS (1)
  - Haemorrhage [None]
